FAERS Safety Report 20590240 (Version 1)
Quarter: 2022Q1

REPORT INFORMATION
  Report Type: Spontaneous
  Country: GB (occurrence: None)
  Receive Date: 20220314
  Receipt Date: 20220314
  Transmission Date: 20220424
  Serious: Yes (Hospitalization, Other)
  Sender: FDA-Public Use
  Company Number: GB-ADIENNEP-2022AD000189

PATIENT
  Age: 67 Year
  Sex: Female

DRUGS (4)
  1. THIOTEPA [Suspect]
     Active Substance: THIOTEPA
     Indication: Immunochemotherapy
  2. METHOTREXATE [Suspect]
     Active Substance: METHOTREXATE
     Indication: Immunochemotherapy
  3. CYTARABINE [Suspect]
     Active Substance: CYTARABINE
     Indication: Immunochemotherapy
  4. RITUXIMAB [Suspect]
     Active Substance: RITUXIMAB
     Indication: Immunochemotherapy

REACTIONS (1)
  - Neutropenic sepsis [Unknown]
